FAERS Safety Report 18688074 (Version 1)
Quarter: 2020Q4

REPORT INFORMATION
  Report Type: Spontaneous
  Country: MX (occurrence: MX)
  Receive Date: 20201231
  Receipt Date: 20201231
  Transmission Date: 20210114
  Serious: Yes (Hospitalization, Other)
  Sender: FDA-Public Use
  Company Number: MX-SA-2020SA372598

PATIENT

DRUGS (1)
  1. THYMOGLOBULIN [Suspect]
     Active Substance: LAPINE T-LYMPHOCYTE IMMUNE GLOBULIN
     Indication: TRANSPLANT REJECTION

REACTIONS (8)
  - Hypertriglyceridaemia [Recovering/Resolving]
  - Productive cough [Recovering/Resolving]
  - Histoplasmosis [Recovering/Resolving]
  - Bicytopenia [Recovering/Resolving]
  - Hepatosplenomegaly [Recovering/Resolving]
  - Hyperferritinaemia [Recovering/Resolving]
  - Haemophagocytic lymphohistiocytosis [Recovering/Resolving]
  - Pyrexia [Recovering/Resolving]
